FAERS Safety Report 25150104 (Version 4)
Quarter: 2025Q3

REPORT INFORMATION
  Report Type: Spontaneous
  Country: JP (occurrence: JP)
  Receive Date: 20250402
  Receipt Date: 20250804
  Transmission Date: 20251020
  Serious: Yes (Hospitalization)
  Sender: ABBVIE
  Company Number: JP-ABBVIE-6202983

PATIENT
  Age: 79 Year
  Sex: Female
  Weight: 56 kg

DRUGS (7)
  1. RINVOQ [Suspect]
     Active Substance: UPADACITINIB
     Indication: Colitis ulcerative
     Dosage: FORM STRENGTH: 45 MILLIGRAM
     Route: 048
     Dates: start: 20250305, end: 20250328
  2. SITAGLIPTIN PHOSPHATE [Concomitant]
     Active Substance: SITAGLIPTIN PHOSPHATE
     Indication: Diabetes mellitus
     Dosage: 50 MILLIGRAM
     Route: 048
     Dates: start: 20211210
  3. METFORMIN HYDROCHLORIDE [Concomitant]
     Active Substance: METFORMIN HYDROCHLORIDE
     Indication: Diabetes mellitus
     Route: 048
     Dates: start: 20200925
  4. VONOPRAZAN FUMARATE [Concomitant]
     Active Substance: VONOPRAZAN FUMARATE
     Indication: Gastrooesophageal reflux disease
     Dosage: 10 MILLIGRAM
     Route: 048
     Dates: start: 20201016
  5. MESALAMINE [Concomitant]
     Active Substance: MESALAMINE
     Indication: Colitis ulcerative
     Route: 048
     Dates: start: 20200701
  6. FILGOTINIB MALEATE [Suspect]
     Active Substance: FILGOTINIB MALEATE
     Indication: Colitis ulcerative
     Route: 048
     Dates: start: 20241025, end: 202503
  7. AZATHIOPRINE [Suspect]
     Active Substance: AZATHIOPRINE
     Indication: Colitis ulcerative
     Dosage: 50 MILLIGRAM
     Route: 048
     Dates: start: 20201225, end: 20250328

REACTIONS (7)
  - Herpes zoster meningitis [Recovered/Resolved]
  - Herpes zoster infection neurological [Recovering/Resolving]
  - Post herpetic neuralgia [Not Recovered/Not Resolved]
  - Nausea [Recovering/Resolving]
  - Vomiting [Unknown]
  - Pyrexia [Unknown]
  - Ophthalmic herpes zoster [Recovering/Resolving]

NARRATIVE: CASE EVENT DATE: 20250327
